FAERS Safety Report 7644506-0 (Version None)
Quarter: 2011Q3

REPORT INFORMATION
  Report Type: 
  Country: None (occurrence: None)
  Receive Date: 20110729
  Receipt Date: 20110725
  Transmission Date: 20111222
  Serious: Yes (Death)
  Sender: FDA-Public Use
  Company Number: CA-ROCHE-792521

PATIENT
  Sex: Female
  Weight: 61.2 kg

DRUGS (8)
  1. IRON TABLETS [Concomitant]
  2. EPREX [Concomitant]
  3. ASPIRIN [Concomitant]
  4. CAPECITABINE [Suspect]
     Indication: BREAST CANCER
     Route: 048
     Dates: start: 20110501
  5. NORVASC [Concomitant]
  6. LIPITOR [Concomitant]
  7. COLACE [Concomitant]
  8. INSULIN [Concomitant]

REACTIONS (1)
  - DEATH [None]
